FAERS Safety Report 8371887-5 (Version None)
Quarter: 2012Q2

REPORT INFORMATION
  Report Type: 
  Country: None (occurrence: None)
  Receive Date: 20120518
  Receipt Date: 20120504
  Transmission Date: 20120825
  Serious: Yes (Disabling)
  Sender: FDA-Public Use
  Company Number: US-ROCHE-1023980

PATIENT
  Sex: Female

DRUGS (1)
  1. LUCENTIS [Suspect]
     Indication: PRODUCT USED FOR UNKNOWN INDICATION
     Dosage: DOSE: 0.05 CC
     Route: 050
     Dates: start: 20110701

REACTIONS (4)
  - VISUAL ACUITY REDUCED [None]
  - OVERDOSE [None]
  - MALAISE [None]
  - SENSORY DISTURBANCE [None]
